FAERS Safety Report 10045589 (Version 2)
Quarter: 2014Q1

REPORT INFORMATION
  Report Type: Spontaneous
  Country: US (occurrence: US)
  Receive Date: 20140328
  Receipt Date: 20140328
  Transmission Date: 20141002
  Serious: Yes (Hospitalization, Other)
  Sender: FDA-Public Use
  Company Number: US-BAXTER-2014BAX012600

PATIENT
  Age: 54 Year
  Sex: Male

DRUGS (1)
  1. DIANEAL LOW CALCIUM [Suspect]
     Indication: PERITONEAL DIALYSIS
     Route: 033
     Dates: start: 2008

REACTIONS (9)
  - Respiratory tract congestion [Unknown]
  - Blood creatinine increased [Recovering/Resolving]
  - Blood urea increased [Recovering/Resolving]
  - Blood phosphorus increased [Recovered/Resolved with Sequelae]
  - Disorientation [Recovering/Resolving]
  - Hypertension [Recovering/Resolving]
  - Fluid overload [Recovering/Resolving]
  - Peritoneal haemorrhage [Unknown]
  - Confusional state [Unknown]
